FAERS Safety Report 5876996-8 (Version None)
Quarter: 2008Q3

REPORT INFORMATION
  Report Type: 
  Country: None (occurrence: None)
  Receive Date: 20080909
  Receipt Date: 20080909
  Transmission Date: 20090109
  Serious: Yes (Other)
  Sender: FDA-Public Use
  Company Number: None

PATIENT
  Age: 44 Year
  Sex: Female
  Weight: 63.5036 kg

DRUGS (1)
  1. AZITHROMYCIN [Suspect]
     Indication: PNEUMONIA PRIMARY ATYPICAL
     Dosage: 1X A DAY PO
     Route: 048
     Dates: start: 20080429, end: 20080503

REACTIONS (2)
  - AGEUSIA [None]
  - ANOSMIA [None]
